FAERS Safety Report 5935228-2 (Version None)
Quarter: 2008Q4

REPORT INFORMATION
  Report Type: 
  Country: None (occurrence: None)
  Receive Date: 20081030
  Receipt Date: 20081021
  Transmission Date: 20090506
  Serious: Yes (Other)
  Sender: FDA-Public Use
  Company Number: US-ROCHE-592812

PATIENT
  Sex: Female
  Weight: 72.6 kg

DRUGS (3)
  1. CAPECITABINE [Suspect]
     Indication: BREAST CANCER
     Dosage: 4 TAB 500 MG DAILY
     Route: 065
     Dates: start: 20080303
  2. CAPECITABINE [Suspect]
     Dosage: ONE WEEK ON ONE WEEK OFF
     Route: 065
     Dates: start: 20080319, end: 20081020
  3. NAVELBINE [Concomitant]
     Dates: start: 20081020

REACTIONS (3)
  - DRUG INEFFECTIVE [None]
  - NEOPLASM PROGRESSION [None]
  - PALMAR-PLANTAR ERYTHRODYSAESTHESIA SYNDROME [None]
